FAERS Safety Report 9934476 (Version 2)
Quarter: 2014Q2

REPORT INFORMATION
  Report Type: Spontaneous
  Country: JP (occurrence: None)
  Receive Date: 20140226
  Receipt Date: 20140603
  Transmission Date: 20141212
  Serious: Yes (Hospitalization, Other)
  Sender: FDA-Public Use
  Company Number: 2010JP004032

PATIENT
  Age: 37 Year
  Sex: Female
  Weight: 84 kg

DRUGS (38)
  1. PROGRAF (TACROLIMUS) CAPSULE [Suspect]
     Indication: LUPUS NEPHRITIS
     Route: 048
     Dates: start: 20080303, end: 20121121
  2. PREDONINE [Suspect]
     Indication: LUPUS NEPHRITIS
     Route: 048
     Dates: start: 20071210, end: 20080302
  3. GASTER (FAMOTIDINE) [Concomitant]
  4. DIOVAN (VALSARTAN) [Concomitant]
  5. PL GRAN. (CAFFEINE, PARACETAMOL, PROMETHAZINE METHYLENE DISALICYLATE, SALICYLAMIDE) [Concomitant]
  6. CLARITH (CLARITHROMYCIN) [Concomitant]
  7. OPISEZOL-CODEINE (DIHYDROCODEINE PHOSPHATE, GLYCYRRHIZA GLABRA EXTRACT, HERBAL EXTRACT NOS) [Concomitant]
  8. CALONAL (PARACETAMOL) [Concomitant]
  9. FERROMIA (FERROUS SODIUM CITRATE) [Concomitant]
  10. ASTOMIN (DIMEMORFAN) [Concomitant]
  11. BONALON (ALENDRONATE SODIUM) [Concomitant]
  12. ISODINE GARGLE (POVIDONE-IODINE) [Concomitant]
  13. MUCODYNE (CARBOCISTEINE) [Concomitant]
  14. METGLUCO (METFORMIN HYDROCHLORIDE) [Concomitant]
  15. BYETTA (EXENATIDE) [Concomitant]
  16. GLIMICRON (GLICLAZIDE) [Concomitant]
  17. MELBIN (METFORMIN HYDROCHLORIDE) [Concomitant]
  18. LOXONIN (LOXOPROFEN SODIUM) [Concomitant]
  19. MUCOSTA (REBAMIPIDE) [Concomitant]
  20. OPISEZOL A SOLUTION (ORAL USE) [Concomitant]
  21. SENEGA /00122901/ (AMMONIUM CHLORIDE, CAPSICUM ANNUUM TINCTURE, CEPHAELIS SPP, FLUID EXTRACT, POLYGALA SENEGA EXTRACT, QUILLAJA SAPONARIA BARK EXTRACT) [Concomitant]
  22. APRICOT KERNEL WATER (PRUNUS ARMENIACA SEED EXTRACT) [Concomitant]
  23. SOLU-CORTEF (HYDROCORTISONE SODIUM SUCCINATE) [Concomitant]
  24. PREDONINE /00016201/ (PREDNISOLONE) [Concomitant]
  25. BIO-THREE (BACILLUS MESENTERICUS, CLOSTRIDIUM BUTYRICUM, STREPTOCOCCUS FAECALIS) [Concomitant]
  26. LAMISIL /00992601/ (TERBINAFINE) CREAM [Concomitant]
  27. BAYASPIRIN (ACETYLSALICYLIC ACID) (ACETYLSALICYLIC ACID) [Concomitant]
  28. NEXIUM /0149302/ (ESOMEPRAZOLE MAGNESIUM) [Concomitant]
  29. PLAVIX (CLOPIDOGREL SULFATE) [Concomitant]
  30. NIFLEC (MACROGOL, POTASSIUM CHLORIDE, SODIUM BICARBONATE, SODIUM CHLORIDE, SODIUM SULFATE ANHYDROUS) [Concomitant]
  31. LAXOBERON (SODIUM PICOSULFATE) [Concomitant]
  32. GASCON (DIMETICONE) [Concomitant]
  33. ADSORBIN (ALUMINIUM SILICATE) [Concomitant]
  34. KEISHIBUKURYOGAN (HERBAL EXTRACT NOS) [Concomitant]
  35. VOLTAREN /00372301/ (DICLOFENAC) [Concomitant]
  36. GLUCAGON (GLUCAGON) [Concomitant]
  37. VEEN D (CALCIUM CHLORIDE DIHYDRATE, GLUCOSE, POTASSIUM CHLORIDE, SODIUM ACETATE, SODIUM CHLORIDE) [Concomitant]
  38. RESPLEN (EPRAZINONE HYDROCHLORIDE) [Concomitant]

REACTIONS (17)
  - Glycosylated haemoglobin increased [None]
  - Glucose urine present [None]
  - Constipation [None]
  - Nasopharyngitis [None]
  - Oedema [None]
  - Iron deficiency anaemia [None]
  - Eczema [None]
  - Diabetes mellitus [None]
  - Hypertension [None]
  - Gastroenteritis viral [None]
  - Vulvovaginal candidiasis [None]
  - Diarrhoea [None]
  - Premenstrual syndrome [None]
  - Arthralgia [None]
  - Angina pectoris [None]
  - Large intestine polyp [None]
  - Headache [None]
